FAERS Safety Report 13573850 (Version 1)
Quarter: 2017Q2

REPORT INFORMATION
  Report Type: Spontaneous
  Country: ES (occurrence: ES)
  Receive Date: 20170523
  Receipt Date: 20170523
  Transmission Date: 20170830
  Serious: Yes (Hospitalization)
  Sender: FDA-Public Use
  Company Number: ES-SA-2017SA090339

PATIENT
  Sex: Male
  Weight: 78 kg

DRUGS (2)
  1. LANTUS [Suspect]
     Active Substance: INSULIN GLARGINE
     Indication: DIABETES MELLITUS
     Route: 051
  2. NOVORAPID [Concomitant]
     Active Substance: INSULIN ASPART
     Indication: DIABETES MELLITUS

REACTIONS (3)
  - Localised infection [Recovered/Resolved]
  - Vascular occlusion [Recovered/Resolved]
  - Mitral valve disease [Unknown]

NARRATIVE: CASE EVENT DATE: 2017
